FAERS Safety Report 4412823-3 (Version None)
Quarter: 2004Q3

REPORT INFORMATION
  Report Type: 
  Country: None (occurrence: None)
  Receive Date: 20040727
  Receipt Date: 20040721
  Transmission Date: 20050211
  Serious: Yes (Hospitalization)
  Sender: FDA-Public Use
  Company Number: TAP2004Q00925

PATIENT
  Age: 29 Year
  Sex: Female

DRUGS (2)
  1. LUPRON DEPOT-3 [Suspect]
     Indication: ENDOMETRIOSIS
     Dosage: 11.25 MG, 1 IN 3 M, INTRAMUSCULAR
     Route: 030
     Dates: start: 20040506, end: 20040506
  2. LAMICTAL [Concomitant]

REACTIONS (8)
  - ABASIA [None]
  - ASTHENIA [None]
  - DYSPEPSIA [None]
  - FATIGUE [None]
  - INFLAMMATION [None]
  - MUSCLE TWITCHING [None]
  - MYELITIS TRANSVERSE [None]
  - VIRAL UPPER RESPIRATORY TRACT INFECTION [None]
